FAERS Safety Report 9219403 (Version 3)
Quarter: 2013Q3

REPORT INFORMATION
  Report Type: Spontaneous
  Country: US (occurrence: None)
  Receive Date: 20130405
  Receipt Date: 20130711
  Transmission Date: 20140515
  Serious: Yes (Hospitalization)
  Sender: FDA-Public Use
  Company Number: ACO_35104_2013

PATIENT
  Age: 61 Year
  Sex: Male
  Weight: 77.1 kg

DRUGS (9)
  1. AMPYRA [Suspect]
     Indication: PRODUCT USED FOR UNKNOWN INDICATION
     Route: 048
  2. COPAXONE (GLATIRAMER ACETATE) [Concomitant]
  3. LACTULOSE [Concomitant]
  4. PROVIGIL [Concomitant]
  5. FINACEA [Concomitant]
  6. DESONIDE [Concomitant]
  7. KETOCONAZOLE [Concomitant]
  8. OMEPRAZOLE [Concomitant]
  9. MULTIVITAMIN [Concomitant]

REACTIONS (2)
  - Urinary retention [None]
  - Urinary tract infection [None]
